FAERS Safety Report 6129039-5 (Version None)
Quarter: 2009Q1

REPORT INFORMATION
  Report Type: 
  Country: None (occurrence: None)
  Receive Date: 20090324
  Receipt Date: 20090319
  Transmission Date: 20090719
  Serious: Yes (Other)
  Sender: FDA-Public Use
  Company Number: TH-JNJFOC-20090304925

PATIENT
  Age: 54 Year
  Sex: Female

DRUGS (1)
  1. CRAVIT [Suspect]
     Indication: RESPIRATORY TRACT INFECTION
     Route: 048

REACTIONS (3)
  - BRONCHOSPASM [None]
  - DRUG ERUPTION [None]
  - EAR DISCOMFORT [None]
